FAERS Safety Report 6209903-9 (Version None)
Quarter: 2009Q2

REPORT INFORMATION
  Report Type: 
  Country: None (occurrence: None)
  Receive Date: 20090601
  Receipt Date: 20090520
  Transmission Date: 20091009
  Serious: Yes (Death, Hospitalization)
  Sender: FDA-Public Use
  Company Number: CZ-PFIZER INC-2009216880

PATIENT
  Age: 79 Year

DRUGS (5)
  1. SUNITINIB MALATE [Suspect]
     Indication: METASTATIC RENAL CELL CARCINOMA
     Dosage: 50 MG, 1X/DAY
     Route: 048
     Dates: start: 20081210, end: 20090323
  2. METOCLOPRAMIDE [Concomitant]
     Route: 048
     Dates: start: 20090225
  3. ALGIFEN [Concomitant]
     Route: 048
     Dates: start: 20090225
  4. CITALOPRAM [Concomitant]
     Route: 048
     Dates: start: 20090225
  5. ZOLEDRONIC ACID [Concomitant]
     Route: 042
     Dates: start: 20081101

REACTIONS (1)
  - THROMBOCYTOPENIA [None]
